FAERS Safety Report 25516389 (Version 1)
Quarter: 2025Q3

REPORT INFORMATION
  Report Type: Spontaneous
  Country: US (occurrence: US)
  Receive Date: 20250704
  Receipt Date: 20250704
  Transmission Date: 20251020
  Serious: No
  Sender: SANOFI AVENTIS
  Company Number: US-SA-2025SA186893

PATIENT
  Age: 78 Year
  Sex: Female
  Weight: 64.55 kg

DRUGS (18)
  1. DUPIXENT [Suspect]
     Active Substance: DUPILUMAB
     Indication: Asthma
     Route: 058
     Dates: start: 20250424, end: 20250613
  2. AMBIEN [Concomitant]
     Active Substance: ZOLPIDEM TARTRATE
  3. METHOTREXATE [Concomitant]
     Active Substance: METHOTREXATE
  4. MONTELUKAST [Concomitant]
     Active Substance: MONTELUKAST
  5. FUROSEMIDE [Concomitant]
     Active Substance: FUROSEMIDE
  6. XARELTO [Concomitant]
     Active Substance: RIVAROXABAN
  7. DOFETILIDE [Concomitant]
     Active Substance: DOFETILIDE
  8. TIADYLT ER [Concomitant]
     Active Substance: DILTIAZEM HYDROCHLORIDE
  9. MINERALS\VITAMINS [Concomitant]
     Active Substance: MINERALS\VITAMINS
  10. FLUTICASONE FUROATE\SALMETEROL XINAFOATE [Concomitant]
     Active Substance: FLUTICASONE FUROATE\SALMETEROL XINAFOATE
  11. MUCINEX [Concomitant]
     Active Substance: GUAIFENESIN
     Route: 048
  12. SPIRONOLACTONE [Concomitant]
     Active Substance: SPIRONOLACTONE
  13. VITAMIN D3 [Concomitant]
     Active Substance: CHOLECALCIFEROL
  14. INCRUSE ELLIPTA [Concomitant]
     Active Substance: UMECLIDINIUM BROMIDE
  15. PREDNISONE [Concomitant]
     Active Substance: PREDNISONE
  16. BUDESONIDE [Concomitant]
     Active Substance: BUDESONIDE
  17. FAMOTIDINE [Concomitant]
     Active Substance: FAMOTIDINE
  18. FOLIC ACID [Concomitant]
     Active Substance: FOLIC ACID

REACTIONS (5)
  - Bronchitis [Unknown]
  - Pyrexia [Recovered/Resolved]
  - Cough [Unknown]
  - Pain [Unknown]
  - Headache [Unknown]

NARRATIVE: CASE EVENT DATE: 20250627
